FAERS Safety Report 11723698 (Version 1)
Quarter: 2015Q4

REPORT INFORMATION
  Report Type: Spontaneous
  Country: US (occurrence: US)
  Receive Date: 20151111
  Receipt Date: 20151111
  Transmission Date: 20160304
  Serious: No
  Sender: FDA-Public Use
  Company Number: US-PERRIGO-14US010077

PATIENT
  Age: 51 Year
  Sex: Female
  Weight: 117.1 kg

DRUGS (1)
  1. NICOTINE POLACRILEX [Suspect]
     Active Substance: NICOTINE
     Indication: SMOKING CESSATION THERAPY
     Dosage: 4 MG, THREE TIMES
     Route: 002
     Dates: start: 20141007, end: 20141007

REACTIONS (3)
  - Hypoaesthesia oral [Not Recovered/Not Resolved]
  - Glossodynia [Not Recovered/Not Resolved]
  - Swollen tongue [Not Recovered/Not Resolved]

NARRATIVE: CASE EVENT DATE: 20141007
